FAERS Safety Report 13588020 (Version 3)
Quarter: 2017Q2

REPORT INFORMATION
  Report Type: Report from Study
  Country: MX (occurrence: MX)
  Receive Date: 20170527
  Receipt Date: 20170608
  Transmission Date: 20170830
  Serious: Yes (Hospitalization)
  Sender: FDA-Public Use
  Company Number: MX-AMGEN-MEXCT2017081489

PATIENT
  Age: 63 Year
  Sex: Female
  Weight: 58 kg

DRUGS (8)
  1. ENALAPRIL [Concomitant]
     Active Substance: ENALAPRIL
     Dosage: 10 MG, 2X/DAY
     Route: 048
     Dates: start: 2014
  2. ETANERCEPT [Suspect]
     Active Substance: ETANERCEPT
     Dosage: WEEKLY
     Route: 058
     Dates: start: 20160926, end: 20170426
  3. FOLIVITAL [Concomitant]
     Dosage: 5 MG, 1X/DAY
     Route: 048
     Dates: start: 2000, end: 20170426
  4. LEDERTREXATE [Concomitant]
     Active Substance: METHOTREXATE
     Dosage: 15 MG, WEEKLY
     Route: 048
     Dates: start: 2000, end: 20170426
  5. TREMECOX [Concomitant]
     Dosage: 20 MG, 1X/DAY
     Route: 048
     Dates: start: 201608, end: 20170426
  6. NEXIUM [Concomitant]
     Active Substance: ESOMEPRAZOLE MAGNESIUM
     Dosage: 20 MG, 1X/DAY
     Route: 048
     Dates: start: 201608, end: 20170426
  7. ETANERCEPT [Suspect]
     Active Substance: ETANERCEPT
     Indication: RHEUMATOID ARTHRITIS
     Dosage: WEEKLY
     Route: 058
     Dates: start: 20160926
  8. PRAVASTATIN. [Concomitant]
     Active Substance: PRAVASTATIN
     Dosage: 20 MG, 1X/DAY
     Route: 048
     Dates: start: 2014, end: 20170426

REACTIONS (1)
  - Renal tuberculosis [Not Recovered/Not Resolved]

NARRATIVE: CASE EVENT DATE: 20170421
